FAERS Safety Report 4830607-9 (Version None)
Quarter: 2005Q4

REPORT INFORMATION
  Report Type: 
  Country: None (occurrence: None)
  Receive Date: 20051115
  Receipt Date: 20051109
  Transmission Date: 20060501
  Serious: Yes (Life-Threatening, Other)
  Sender: FDA-Public Use
  Company Number: PTWYE043010OCT05

PATIENT
  Age: 69 Year
  Sex: Female

DRUGS (3)
  1. TAZOBAC     (PIPERACILLIN/TAZOBACTAM, INJECTION) [Suspect]
     Indication: CHOLANGITIS
     Dosage: 4.5 G 1X PER 1 DAY INTRAVENOUS
     Route: 042
     Dates: start: 20050905, end: 20050905
  2. SCOPOLAMINE AMINOXIDE HYDROBROMIDE [Concomitant]
  3. KETOPROFEN [Concomitant]

REACTIONS (3)
  - PRURITUS [None]
  - RESPIRATORY FAILURE [None]
  - TREMOR [None]
